FAERS Safety Report 5721670-1 (Version None)
Quarter: 2008Q2

REPORT INFORMATION
  Report Type: 
  Country: None (occurrence: None)
  Receive Date: 20080429
  Receipt Date: 20080425
  Transmission Date: 20081010
  Serious: Yes (Life-Threatening)
  Sender: FDA-Public Use
  Company Number: PHHY2008SE06532

PATIENT
  Age: 18 Year
  Sex: Male

DRUGS (9)
  1. RITALIN [Suspect]
     Dosage: 10MG/DAY
  2. RITALIN [Suspect]
     Dosage: 50MG/DAY
  3. CAFFEINE CITRATE [Concomitant]
  4. RISPERIDONE [Concomitant]
  5. ZOLPIDEM [Concomitant]
  6. CITALOPRAM HYDROBROMIDE [Concomitant]
  7. DESITIN [Concomitant]
  8. VALPROIC ACID [Concomitant]
  9. VALPROATE SODIUM [Concomitant]

REACTIONS (6)
  - ARRHYTHMIA [None]
  - CARDIAC TELEMETRY ABNORMAL [None]
  - ELECTROCARDIOGRAM ABNORMAL [None]
  - ELECTROCARDIOGRAM T WAVE INVERSION [None]
  - PALPITATIONS [None]
  - SINUS TACHYCARDIA [None]
